FAERS Safety Report 8486939-9 (Version None)
Quarter: 2012Q3

REPORT INFORMATION
  Report Type: 
  Country: None (occurrence: None)
  Receive Date: 20120704
  Receipt Date: 20120511
  Transmission Date: 20120928
  Serious: No
  Sender: FDA-Public Use
  Company Number: US-BAUSCH-2012BL003144

PATIENT
  Age: 66 Year
  Sex: Male

DRUGS (7)
  1. ZANTAC [Concomitant]
     Indication: DYSPEPSIA
  2. PRED FORTE [Concomitant]
     Route: 047
  3. JULIAN WHITAKER FORWARD REGIME SUPPLEMENT [Concomitant]
     Indication: VITAMIN SUPPLEMENTATION
  4. ACYCLOVIR [Concomitant]
  5. PLAQUENILE [Concomitant]
  6. ZIRGAN [Suspect]
     Indication: KERATITIS HERPETIC
     Route: 047
     Dates: start: 20120502, end: 20120502
  7. PREDNISONE [Concomitant]

REACTIONS (1)
  - EYE IRRITATION [None]
